FAERS Safety Report 13185129 (Version 1)
Quarter: 2017Q1

REPORT INFORMATION
  Report Type: Spontaneous
  Country: US (occurrence: US)
  Receive Date: 20170203
  Receipt Date: 20170203
  Transmission Date: 20170428
  Serious: No
  Sender: FDA-Public Use
  Company Number: US-GILEAD-2017-0256654

PATIENT
  Sex: Male

DRUGS (2)
  1. ETRAVIRINE [Concomitant]
     Active Substance: ETRAVIRINE
     Indication: SALVAGE THERAPY
  2. GENVOYA [Suspect]
     Active Substance: COBICISTAT\ELVITEGRAVIR\EMTRICITABINE\TENOFOVIR ALAFENAMIDE FUMARATE
     Indication: SALVAGE THERAPY
     Route: 065

REACTIONS (1)
  - Off label use [Unknown]
